FAERS Safety Report 20848150 (Version 1)
Quarter: 2022Q2

REPORT INFORMATION
  Report Type: Spontaneous
  Country: US (occurrence: None)
  Receive Date: 20220518
  Receipt Date: 20220518
  Transmission Date: 20220721
  Serious: Yes (Hospitalization)
  Sender: FDA-Public Use
  Company Number: None

PATIENT
  Sex: Female

DRUGS (8)
  1. CAPECITABINE [Suspect]
     Active Substance: CAPECITABINE
     Indication: Breast cancer female
     Dosage: DOSE AND AMOUNT:  TAKE 3 TABLETS BY MOUTH TWICE DAILY FOR 14 DAYS FOLLOWED BY A 7 DAY REST PERIOD
     Route: 048
     Dates: start: 20210322
  2. ATIVAN [Concomitant]
  3. DEXAMETHASONE [Concomitant]
     Active Substance: DEXAMETHASONE
  4. ELIQUIS [Concomitant]
     Active Substance: APIXABAN
  5. FASLODEX [Concomitant]
     Active Substance: FULVESTRANT
  6. DIETARY SUPPLEMENT [Concomitant]
     Active Substance: DIETARY SUPPLEMENT
  7. LOPRESSOR [Concomitant]
     Active Substance: METOPROLOL TARTRATE
  8. MELATONIN [Concomitant]
     Active Substance: MELATONIN

REACTIONS (1)
  - Cardiac assistance device user [None]
